FAERS Safety Report 22019122 (Version 1)
Quarter: 2023Q1

REPORT INFORMATION
  Report Type: Spontaneous
  Country: US (occurrence: None)
  Receive Date: 20230222
  Receipt Date: 20230222
  Transmission Date: 20230417
  Serious: Yes (Death, Other)
  Sender: FDA-Public Use
  Company Number: US-Unichem Pharmaceuticals (USA) Inc-UCM202302-000207

PATIENT
  Age: 71 Year
  Sex: Female

DRUGS (1)
  1. ALLOPURINOL [Suspect]
     Active Substance: ALLOPURINOL
     Indication: Gout
     Dosage: UNKNOWN

REACTIONS (6)
  - Haemorrhage intracranial [Fatal]
  - Encephalopathy [Unknown]
  - Cerebral microembolism [Unknown]
  - Mental impairment [Unknown]
  - Unresponsive to stimuli [Unknown]
  - Drug reaction with eosinophilia and systemic symptoms [Unknown]
